FAERS Safety Report 10145763 (Version 1)
Quarter: 2014Q2

REPORT INFORMATION
  Report Type: Spontaneous
  Country: US (occurrence: US)
  Receive Date: 20140501
  Receipt Date: 20140501
  Transmission Date: 20141212
  Serious: No
  Sender: FDA-Public Use
  Company Number: US-ABBVIE-13P-163-1164428-00

PATIENT
  Sex: Female
  Weight: 53.57 kg

DRUGS (5)
  1. CREON [Suspect]
     Indication: PANCREATIC INSUFFICIENCY
     Dosage: WITH MEALS
     Route: 048
     Dates: start: 2011
  2. LEVOTHYROXINE [Concomitant]
     Indication: HYPOTHYROIDISM
  3. OMEPRAZOLE [Concomitant]
     Indication: GASTROOESOPHAGEAL REFLUX DISEASE
  4. PAXIL [Concomitant]
     Indication: DEPRESSION
  5. TRIAMTERENE [Concomitant]
     Indication: FLUID RETENTION

REACTIONS (2)
  - Oesophageal candidiasis [Unknown]
  - Cough [Not Recovered/Not Resolved]
